FAERS Safety Report 24632683 (Version 2)
Quarter: 2024Q4

REPORT INFORMATION
  Report Type: Spontaneous
  Country: CN (occurrence: CN)
  Receive Date: 20241118
  Receipt Date: 20241121
  Transmission Date: 20250114
  Serious: Yes (Other)
  Sender: INCYTE
  Company Number: CN-002147023-NVSC2024CN216776

PATIENT

DRUGS (13)
  1. RUXOLITINIB [Suspect]
     Active Substance: RUXOLITINIB
     Indication: T-cell lymphoma
     Dosage: RUE-DDGP REGIMEN
     Route: 048
  2. RUXOLITINIB [Suspect]
     Active Substance: RUXOLITINIB
     Indication: Haemophagocytic lymphohistiocytosis
  3. ETOPOSIDE [Suspect]
     Active Substance: ETOPOSIDE
     Indication: T-cell lymphoma
     Dosage: FOR 2 WEEKS;  RUE-DDGP REGIMEN
     Route: 042
  4. ETOPOSIDE [Suspect]
     Active Substance: ETOPOSIDE
     Indication: Haemophagocytic lymphohistiocytosis
  5. ETOPOSIDE [Suspect]
     Active Substance: ETOPOSIDE
     Indication: Haemophagocytic lymphohistiocytosis
  6. DEXAMETHASONE [Suspect]
     Active Substance: DEXAMETHASONE
     Indication: T-cell lymphoma
     Dosage: RUE-DDGP REGIMEN
     Route: 042
  7. DEXAMETHASONE [Suspect]
     Active Substance: DEXAMETHASONE
     Indication: Haemophagocytic lymphohistiocytosis
  8. GEMCITABINE [Suspect]
     Active Substance: GEMCITABINE
     Indication: T-cell lymphoma
     Dosage: 0.5?G/M2; RUE-DDGP REGIMEN
     Route: 065
  9. GEMCITABINE [Suspect]
     Active Substance: GEMCITABINE
     Indication: Haemophagocytic lymphohistiocytosis
  10. PEGASPARGASE [Suspect]
     Active Substance: PEGASPARGASE
     Indication: T-cell lymphoma
     Dosage: 2500?IU/M2 ; RUE-DDGP REGIMEN
     Route: 030
  11. PEGASPARGASE [Suspect]
     Active Substance: PEGASPARGASE
     Indication: Haemophagocytic lymphohistiocytosis
  12. CISPLATIN [Suspect]
     Active Substance: CISPLATIN
     Indication: T-cell lymphoma
     Dosage: RUE-DDGP REGIMEN
     Route: 042
  13. CISPLATIN [Suspect]
     Active Substance: CISPLATIN
     Indication: Haemophagocytic lymphohistiocytosis

REACTIONS (2)
  - Product use in unapproved indication [Unknown]
  - Thrombocytopenia [Unknown]
